FAERS Safety Report 11882042 (Version 1)
Quarter: 2015Q4

REPORT INFORMATION
  Report Type: Spontaneous
  Country: CA (occurrence: CA)
  Receive Date: 20151231
  Receipt Date: 20151231
  Transmission Date: 20160305
  Serious: Yes (Hospitalization)
  Sender: FDA-Public Use
  Company Number: CA-JNJFOC-20151217622

PATIENT
  Age: 20 Month
  Sex: Female
  Weight: 16 kg

DRUGS (3)
  1. INFANTS TYLENOL [Suspect]
     Active Substance: ACETAMINOPHEN
     Indication: PYREXIA
     Dosage: EVERY 4 TO 6 HOURS AS NEEDED.
     Route: 048
     Dates: start: 20151127
  2. SALBUTAMOL SULFATE [Concomitant]
     Active Substance: ALBUTEROL SULFATE
     Indication: DYSPNOEA
     Dosage: 100 MCG PER DOSE, EVERY 4 HOURS AS NEEDED.
     Route: 065
     Dates: start: 20151127
  3. INFANTS TYLENOL [Suspect]
     Active Substance: ACETAMINOPHEN
     Indication: PYREXIA
     Dosage: EVERY 4 TO 6 HOURS
     Route: 048

REACTIONS (3)
  - Product label issue [Unknown]
  - Lung disorder [Recovered/Resolved]
  - Incorrect dose administered [Recovered/Resolved]
